FAERS Safety Report 12263841 (Version 1)
Quarter: 2016Q2

REPORT INFORMATION
  Report Type: Spontaneous
  Country: US (occurrence: US)
  Receive Date: 20160413
  Receipt Date: 20160413
  Transmission Date: 20160815
  Serious: No
  Sender: FDA-Public Use
  Company Number: US-JNJFOC-20160321757

PATIENT
  Age: 75 Year
  Sex: Female
  Weight: 60.33 kg

DRUGS (3)
  1. TYLENOL 8 HR ARTHRITIS PAIN [Suspect]
     Active Substance: ACETAMINOPHEN
     Indication: MUSCULOSKELETAL STIFFNESS
     Route: 048
     Dates: end: 20160319
  2. TYLENOL 8 HR ARTHRITIS PAIN [Suspect]
     Active Substance: ACETAMINOPHEN
     Indication: ARTHRITIS
     Route: 048
     Dates: end: 20160319
  3. TYLENOL 8 HR ARTHRITIS PAIN [Suspect]
     Active Substance: ACETAMINOPHEN
     Indication: PAIN IN EXTREMITY
     Route: 048
     Dates: end: 20160319

REACTIONS (3)
  - Product use issue [Unknown]
  - Drug ineffective for unapproved indication [Unknown]
  - Off label use [Unknown]
